FAERS Safety Report 6253918-1 (Version None)
Quarter: 2009Q3

REPORT INFORMATION
  Report Type: 
  Country: None (occurrence: None)
  Receive Date: 20090702
  Receipt Date: 20090625
  Transmission Date: 20100115
  Serious: Yes (Hospitalization)
  Sender: FDA-Public Use
  Company Number: US-ASTRAZENECA-2009UW17807

PATIENT
  Age: 55 Year
  Sex: Male
  Weight: 91.2 kg

DRUGS (13)
  1. NEXIUM [Suspect]
     Indication: GASTROOESOPHAGEAL REFLUX DISEASE
     Route: 048
     Dates: start: 20070101
  2. VYTORIN [Concomitant]
     Route: 065
  3. COUMADIN [Concomitant]
     Route: 065
  4. LISINOPRIL [Concomitant]
     Route: 065
  5. COREG [Concomitant]
     Route: 065
  6. ACTONEL [Concomitant]
     Route: 065
  7. PREDNISONE [Concomitant]
     Indication: SARCOIDOSIS
     Route: 065
  8. REQUIP [Concomitant]
     Route: 065
  9. NITROGLYCERIN [Concomitant]
     Route: 065
  10. ASPIRIN [Concomitant]
     Route: 065
  11. IRON [Concomitant]
     Route: 065
  12. FISH OIL [Concomitant]
     Route: 065
  13. VITAMIN D [Concomitant]
     Route: 065

REACTIONS (2)
  - HIP SURGERY [None]
  - MYOCARDIAL INFARCTION [None]
